FAERS Safety Report 10878299 (Version 1)
Quarter: 2015Q1

REPORT INFORMATION
  Report Type: Spontaneous
  Country: US (occurrence: US)
  Receive Date: 20150302
  Receipt Date: 20150302
  Transmission Date: 20150721
  Serious: No
  Sender: FDA-Public Use
  Company Number: US-ABBVIE-14P-163-1227376-00

PATIENT
  Age: 82 Year
  Sex: Male
  Weight: 74.91 kg

DRUGS (6)
  1. MULTIVITAMIN [Concomitant]
     Active Substance: VITAMINS
     Indication: VITAMIN SUPPLEMENTATION
  2. ANDROGEL [Suspect]
     Active Substance: TESTOSTERONE
     Indication: PRODUCT USED FOR UNKNOWN INDICATION
     Dosage: ONE 2.5 GM PKT
     Route: 061
     Dates: start: 201403
  3. GABAPENTIN. [Concomitant]
     Active Substance: GABAPENTIN
     Indication: NOTALGIA PARAESTHETICA
  4. FORTEO [Concomitant]
     Active Substance: TERIPARATIDE
     Indication: BONE DISORDER
  5. VITAMIN D [Concomitant]
     Active Substance: CHOLECALCIFEROL
     Indication: BONE DISORDER
  6. ASPIRIN. [Concomitant]
     Active Substance: ASPIRIN
     Indication: CARDIAC DISORDER

REACTIONS (1)
  - Libido increased [Not Recovered/Not Resolved]

NARRATIVE: CASE EVENT DATE: 201403
